FAERS Safety Report 9471808 (Version 1)
Quarter: 2013Q3

REPORT INFORMATION
  Report Type: Spontaneous
  Country: US (occurrence: None)
  Receive Date: 20130819
  Receipt Date: 20130819
  Transmission Date: 20140515
  Serious: Yes (Other)
  Sender: FDA-Public Use
  Company Number: ACO_37894_2013

PATIENT
  Sex: Female
  Weight: 68 kg

DRUGS (15)
  1. AMPYRA [Suspect]
     Indication: PRODUCT USED FOR UNKNOWN INDICATION
     Route: 048
  2. BACLOFEN (BACLOFEN) [Concomitant]
  3. TIZANIDINE (TIZANIDINE) [Concomitant]
  4. ONDANSETRON (ONDANSETRON) [Concomitant]
  5. METOCLOPRAMIDE (METOCLOPRAMIDE) [Concomitant]
  6. CLONAZEPAM (CLONAZEPAM) [Concomitant]
  7. ARMOUR THYROID (THYROID) [Concomitant]
  8. SUMATRIPTAN (SUMATRIPTAN) [Concomitant]
  9. BOTOX (BOTULINUM TOXIN TYPE A) [Concomitant]
  10. NAPROXEN (NAPROXEN) [Concomitant]
  11. LOPERAMIDE (LOPERAMIDE) [Concomitant]
  12. EXCEDRIN (ACETYLSALICYLIC ACID, CAFFEINE, PARACETAMOL) [Concomitant]
  13. VITAMIN D3 (COLECALCIFEROL) [Concomitant]
  14. CYANOCOBALAMIN (CYANOCOBALAMIN) [Concomitant]
  15. DIMETHYL FUMARATE (DIMETHYL FUMARATE) [Concomitant]

REACTIONS (3)
  - Synovial cyst [None]
  - Gout [None]
  - Abdominal pain upper [None]
